FAERS Safety Report 26202194 (Version 1)
Quarter: 2025Q4

REPORT INFORMATION
  Report Type: Report from Study
  Country: ZA (occurrence: ZA)
  Receive Date: 20251226
  Receipt Date: 20251226
  Transmission Date: 20260117
  Serious: Yes (Other)
  Sender: ROCHE
  Company Number: ZA-ROCHE-10000321650

PATIENT
  Age: 57 Year
  Sex: Male

DRUGS (5)
  1. VABYSMO [Suspect]
     Active Substance: FARICIMAB-SVOA
     Indication: Macular degeneration
     Dosage: THE PREVIOUS FARICIMAB INJECTION WAS ADMINISTERED ON 23-JUL-2025.
     Dates: start: 20250414
  2. VABYSMO [Suspect]
     Active Substance: FARICIMAB-SVOA
     Indication: Diabetic retinopathy
  3. VABYSMO [Suspect]
     Active Substance: FARICIMAB-SVOA
     Indication: Diabetic eye disease
  4. AVASTIN [Suspect]
     Active Substance: BEVACIZUMAB
     Indication: Diabetic retinopathy
  5. AVASTIN [Suspect]
     Active Substance: BEVACIZUMAB
     Indication: Diabetic retinal oedema

REACTIONS (3)
  - Visual acuity tests abnormal [Unknown]
  - Retinal thickening [Unknown]
  - Optical coherence tomography abnormal [Unknown]
